FAERS Safety Report 5559993-1 (Version None)
Quarter: 2007Q4

REPORT INFORMATION
  Report Type: 
  Country: None (occurrence: None)
  Receive Date: 20071214
  Receipt Date: 20071107
  Transmission Date: 20080405
  Serious: Yes (Hospitalization, Other)
  Sender: FDA-Public Use
  Company Number: US-ABBOTT-07P-163-0421658-00

PATIENT
  Sex: Female
  Weight: 70.37 kg

DRUGS (9)
  1. HUMIRA [Suspect]
     Indication: RHEUMATOID ARTHRITIS
     Route: 058
     Dates: start: 20050601, end: 20050701
  2. HUMIRA [Suspect]
     Route: 058
     Dates: start: 20051201, end: 20070101
  3. HUMIRA [Suspect]
     Route: 058
     Dates: start: 20070101
  4. PREGABALIN [Concomitant]
     Indication: PAIN
     Route: 048
  5. IBANDRONATE SODIUM [Concomitant]
     Indication: OSTEOPOROSIS
     Route: 048
  6. LIDOCAINE [Concomitant]
     Indication: PAIN
     Route: 062
  7. SERTRALINE [Concomitant]
     Indication: ANTIDEPRESSANT THERAPY
     Route: 048
  8. CLONAZEPAM [Concomitant]
     Indication: HOT FLUSH
     Route: 048
  9. FOLIC ACID [Concomitant]
     Indication: DRUG USE FOR UNKNOWN INDICATION
     Route: 048

REACTIONS (5)
  - ARTHRALGIA [None]
  - BREAST CANCER STAGE I [None]
  - DRUG INEFFECTIVE [None]
  - JOINT SWELLING [None]
  - WOUND INFECTION STAPHYLOCOCCAL [None]
